FAERS Safety Report 11674292 (Version 2)
Quarter: 2015Q4

REPORT INFORMATION
  Report Type: Spontaneous
  Country: JP (occurrence: JP)
  Receive Date: 20151028
  Receipt Date: 20151130
  Transmission Date: 20160304
  Serious: Yes (Hospitalization)
  Sender: FDA-Public Use
  Company Number: JP-SA-2015SA169455

PATIENT
  Age: 17 Year
  Sex: Female
  Weight: 45 kg

DRUGS (3)
  1. LORATADINE. [Suspect]
     Active Substance: LORATADINE
     Route: 065
  2. CARTEOLOL [Suspect]
     Active Substance: CARTEOLOL
     Route: 065
  3. AMARYL [Suspect]
     Active Substance: GLIMEPIRIDE
     Route: 065

REACTIONS (5)
  - Toxicity to various agents [Unknown]
  - Heart rate increased [Recovering/Resolving]
  - Altered state of consciousness [Recovering/Resolving]
  - Yawning [Recovering/Resolving]
  - Hypoglycaemia [Recovering/Resolving]
